FAERS Safety Report 9757477 (Version 1)
Quarter: 2013Q4

REPORT INFORMATION
  Report Type: Spontaneous
  Country: US (occurrence: US)
  Receive Date: 20131215
  Receipt Date: 20131215
  Transmission Date: 20140711
  Serious: No
  Sender: FDA-Public Use
  Company Number: US-B.I. PHARMACEUTICALS,INC./RIDGEFIELD-2013-BI-40160BP

PATIENT
  Age: 72 Year
  Sex: Female
  Weight: 42 kg

DRUGS (5)
  1. ZANTAC (RANITIDINE HYDROCHLORIDE) [Suspect]
     Indication: DYSPEPSIA
     Dosage: PRN
     Route: 048
     Dates: start: 2003
  2. ZANTAC (RANITIDINE HYDROCHLORIDE) [Suspect]
     Indication: DYSPEPSIA
  3. PROVENTIL [Concomitant]
     Indication: ASTHMA
     Dosage: (INHALATION SPRAY)
     Route: 055
  4. XANAX [Concomitant]
     Indication: INSOMNIA
     Dosage: 0.25 MG
     Route: 048
  5. VICODIN [Concomitant]
     Indication: PAIN
     Dosage: STRENGTH: 5/500 MG; DAILY DOSE: 5/500 MG
     Route: 048

REACTIONS (4)
  - Alopecia [Not Recovered/Not Resolved]
  - Skin burning sensation [Not Recovered/Not Resolved]
  - Skin discolouration [Not Recovered/Not Resolved]
  - Abnormal loss of weight [Not Recovered/Not Resolved]
